FAERS Safety Report 6531850-3 (Version None)
Quarter: 2010Q1

REPORT INFORMATION
  Report Type: 
  Country: None (occurrence: None)
  Receive Date: 20100108
  Receipt Date: 20091229
  Transmission Date: 20100710
  Serious: Yes (Hospitalization)
  Sender: FDA-Public Use
  Company Number: US-JNJFOC-20091207847

PATIENT
  Age: 72 Year
  Sex: Female
  Weight: 69.85 kg

DRUGS (7)
  1. TYLENOL (CAPLET) [Suspect]
     Route: 048
  2. TYLENOL (CAPLET) [Suspect]
     Indication: SPINAL COLUMN STENOSIS
     Route: 048
  3. CRESTOR [Concomitant]
     Indication: BLOOD CHOLESTEROL ABNORMAL
  4. BENICAR [Concomitant]
     Indication: HYPERTENSION
  5. NIACIN [Concomitant]
     Indication: BLOOD CHOLESTEROL ABNORMAL
  6. VITAMIN [Concomitant]
  7. FISH OIL [Concomitant]
     Indication: BLOOD CHOLESTEROL ABNORMAL

REACTIONS (3)
  - BLOOD GLUCOSE INCREASED [None]
  - NAUSEA [None]
  - PRODUCT QUALITY ISSUE [None]
